FAERS Safety Report 7634315-0 (Version None)
Quarter: 2011Q3

REPORT INFORMATION
  Report Type: 
  Country: None (occurrence: None)
  Receive Date: 20110725
  Receipt Date: 20110720
  Transmission Date: 20111222
  Serious: Yes (Life-Threatening, Hospitalization, Other)
  Sender: FDA-Public Use
  Company Number: FR-PFIZER INC-2011164532

PATIENT
  Age: 20 Year
  Sex: Female

DRUGS (8)
  1. TOCOPHEROL [Concomitant]
  2. DELURSAN [Concomitant]
     Dosage: 2 DF, 2X/DAY
  3. ZITHROMAX [Concomitant]
     Indication: INFLAMMATION
     Dosage: 250 MG, 1X/DAY
     Route: 048
  4. SPIRIVA [Suspect]
     Dosage: UNK
     Route: 055
     Dates: start: 20110101, end: 20110706
  5. CREON [Concomitant]
     Dosage: 25.000
  6. ZOLOFT [Suspect]
     Dosage: 1 DF, 1X/DAY
     Route: 048
     Dates: start: 20110617, end: 20110706
  7. A 313 [Concomitant]
  8. DORNASE ALFA [Concomitant]
     Route: 055

REACTIONS (3)
  - BUNDLE BRANCH BLOCK [None]
  - ARRHYTHMIA [None]
  - EXTRASYSTOLES [None]
